FAERS Safety Report 15334692 (Version 1)
Quarter: 2018Q3

REPORT INFORMATION
  Report Type: Spontaneous
  Country: HU (occurrence: HU)
  Receive Date: 20180830
  Receipt Date: 20180830
  Transmission Date: 20181010
  Serious: Yes (Other)
  Sender: FDA-Public Use
  Company Number: HU-PFIZER INC-2018343532

PATIENT
  Age: 82 Year
  Sex: Female

DRUGS (1)
  1. MINIPRESS [Suspect]
     Active Substance: PRAZOSIN HYDROCHLORIDE
     Indication: HYPERTENSION

REACTIONS (11)
  - Memory impairment [Unknown]
  - Aspiration [Unknown]
  - Chest injury [Unknown]
  - Atrophy [Unknown]
  - Dizziness [Recovered/Resolved]
  - Fall [Recovered/Resolved]
  - Gait disturbance [Not Recovered/Not Resolved]
  - Weight decreased [Unknown]
  - Parkinson^s disease [Unknown]
  - Upper limb fracture [Unknown]
  - Arthralgia [Recovered/Resolved]
